FAERS Safety Report 5396744-8 (Version None)
Quarter: 2007Q3

REPORT INFORMATION
  Report Type: 
  Country: None (occurrence: None)
  Receive Date: 20070725
  Receipt Date: 20070713
  Transmission Date: 20080115
  Serious: Yes (Hospitalization)
  Sender: FDA-Public Use
  Company Number: US-ELI_LILLY_AND_COMPANY-US200705000089

PATIENT
  Sex: Female

DRUGS (4)
  1. FORTEO [Suspect]
     Indication: OSTEOPOROSIS
     Dosage: UNK, UNKNOWN
     Dates: start: 20070503, end: 20070601
  2. FORTEO [Suspect]
     Dates: start: 20050101, end: 20050101
  3. FORTEO [Suspect]
     Dates: start: 20070601
  4. FORTEO [Suspect]
     Dosage: UNK, UNK
     Dates: start: 20070425, end: 20070501

REACTIONS (3)
  - CARDIAC DISORDER [None]
  - KNEE ARTHROPLASTY [None]
  - PAIN IN EXTREMITY [None]
